FAERS Safety Report 11548128 (Version 2)
Quarter: 2016Q3

REPORT INFORMATION
  Report Type: Spontaneous
  Country: US (occurrence: US)
  Receive Date: 20150924
  Receipt Date: 20160723
  Transmission Date: 20161109
  Serious: No
  Sender: FDA-Public Use
  Company Number: US-ASTRAZENECA-2015SE89370

PATIENT
  Age: 837 Month
  Sex: Female
  Weight: 43.1 kg

DRUGS (8)
  1. ATORVASTATIN [Concomitant]
     Active Substance: ATORVASTATIN
     Indication: BLOOD CHOLESTEROL ABNORMAL
     Dosage: DAILY
     Route: 048
     Dates: start: 2014
  2. MIRTAZAPINE. [Concomitant]
     Active Substance: MIRTAZAPINE
     Indication: ANTIDEPRESSANT THERAPY
     Dosage: AT NIGHT
     Route: 048
     Dates: start: 2015
  3. VITAMIN B12 [Concomitant]
     Active Substance: CYANOCOBALAMIN
     Indication: MEMORY IMPAIRMENT
     Dosage: UNKNOWN
     Route: 048
  4. TUDORZA PRESSAIR [Suspect]
     Active Substance: ACLIDINIUM BROMIDE
     Indication: EMPHYSEMA
     Route: 055
     Dates: start: 2014
  5. MIRTAZAPINE. [Concomitant]
     Active Substance: MIRTAZAPINE
     Indication: APPETITE DISORDER
     Dosage: AT NIGHT
     Route: 048
     Dates: start: 2015
  6. CARDIA [Concomitant]
     Active Substance: AJMALINE
     Indication: CARDIAC DISORDER
     Dosage: DAILY
     Route: 048
     Dates: start: 2014
  7. CALCIUM [Concomitant]
     Active Substance: CALCIUM
     Indication: MEMORY IMPAIRMENT
     Dosage: UNKNOWN
     Route: 048
  8. TUDORZA PRESSAIR [Suspect]
     Active Substance: ACLIDINIUM BROMIDE
     Indication: CHRONIC OBSTRUCTIVE PULMONARY DISEASE
     Route: 055
     Dates: start: 2014

REACTIONS (5)
  - Intentional device misuse [Unknown]
  - Device defective [Unknown]
  - Memory impairment [Not Recovered/Not Resolved]
  - Panic attack [Recovered/Resolved]
  - Circumstance or information capable of leading to medication error [Unknown]

NARRATIVE: CASE EVENT DATE: 201505
